FAERS Safety Report 14515664 (Version 2)
Quarter: 2018Q1

REPORT INFORMATION
  Report Type: Report from Study
  Country: US (occurrence: US)
  Receive Date: 20180210
  Receipt Date: 20180223
  Transmission Date: 20180509
  Serious: Yes (Hospitalization, Other)
  Sender: FDA-Public Use
  Company Number: US-AMGEN-USASL2018016168

PATIENT
  Age: 54 Year
  Sex: Male

DRUGS (1)
  1. REPATHA [Suspect]
     Active Substance: EVOLOCUMAB
     Indication: PRODUCT USED FOR UNKNOWN INDICATION
     Dosage: 140 MG, Q2WK
     Route: 065
     Dates: start: 201711

REACTIONS (3)
  - Rheumatoid arthritis [Recovering/Resolving]
  - Diverticulitis [Recovering/Resolving]
  - Influenza [Recovering/Resolving]

NARRATIVE: CASE EVENT DATE: 2017
